FAERS Safety Report 22531684 (Version 1)
Quarter: 2023Q2

REPORT INFORMATION
  Report Type: Report from Study
  Country: ES (occurrence: ES)
  Receive Date: 20230607
  Receipt Date: 20230607
  Transmission Date: 20230722
  Serious: Yes (Hospitalization)
  Sender: FDA-Public Use
  Company Number: ES-JNJFOC-20230605890

PATIENT
  Age: 80 Year
  Sex: Female
  Weight: 62.4 kg

DRUGS (2)
  1. BORTEZOMIB [Suspect]
     Active Substance: BORTEZOMIB
     Indication: Plasma cell myeloma
     Dosage: 2.08 MILLIGRAM
     Route: 058
     Dates: start: 20230328, end: 20230411
  2. DARATUMUMAB [Suspect]
     Active Substance: DARATUMUMAB
     Indication: Plasma cell myeloma
     Dosage: 1800 MILLIGRAM, MONTHLY
     Route: 058
     Dates: start: 20230328

REACTIONS (2)
  - Back pain [Recovered/Resolved]
  - Hip arthroplasty [Unknown]
